FAERS Safety Report 6060592-6 (Version None)
Quarter: 2009Q1

REPORT INFORMATION
  Report Type: 
  Country: None (occurrence: None)
  Receive Date: 20090202
  Receipt Date: 20090123
  Transmission Date: 20090719
  Serious: Yes (Death, Hospitalization)
  Sender: FDA-Public Use
  Company Number: BE-BRISTOL-MYERS SQUIBB COMPANY-14483846

PATIENT
  Age: 61 Year
  Sex: Male
  Weight: 48 kg

DRUGS (6)
  1. CETUXIMAB [Suspect]
     Indication: HEAD AND NECK CANCER
     Dosage: THE MOST RECENT INFUSION: 13-JAN-2009
     Route: 042
     Dates: start: 20081223, end: 20090113
  2. CISPLATIN [Suspect]
     Indication: HEAD AND NECK CANCER
     Dosage: THE MOST RECENT INFUSION: 13-JAN-2009
     Route: 042
     Dates: start: 20081223, end: 20090113
  3. DOCETAXEL [Suspect]
     Indication: HEAD AND NECK CANCER
     Dosage: THE MOST RECENT INFUSION: 13-JAN-2009
     Route: 042
     Dates: start: 20081223, end: 20090113
  4. FLUOROURACIL [Suspect]
     Indication: HEAD AND NECK CANCER
     Dosage: THE MOST RECENT INFUSION: 13-JAN-2009
     Route: 042
     Dates: start: 20081223, end: 20090113
  5. NEULASTA [Concomitant]
     Route: 058
     Dates: start: 20090115
  6. OFLOXACIN [Concomitant]
     Dates: start: 20081231, end: 20090109

REACTIONS (3)
  - FEBRILE NEUTROPENIA [None]
  - PNEUMONIA [None]
  - SEPTIC SHOCK [None]
